FAERS Safety Report 7245449-7 (Version None)
Quarter: 2011Q1

REPORT INFORMATION
  Report Type: 
  Country: None (occurrence: None)
  Receive Date: 20110126
  Receipt Date: 20110118
  Transmission Date: 20110831
  Serious: Yes (Hospitalization)
  Sender: FDA-Public Use
  Company Number: PHHO2011GB01289

PATIENT
  Sex: Male
  Weight: 112 kg

DRUGS (5)
  1. DOCETAXEL [Suspect]
     Indication: METASTASES TO BONE
     Dosage: UNK
     Dates: start: 20101209, end: 20101209
  2. LISINOPRIL [Suspect]
  3. PREDNISOLONE [Concomitant]
  4. ZOLEDRONATE [Suspect]
     Indication: METASTASES TO BONE
     Dosage: UNK
     Dates: start: 20101209, end: 20101209
  5. CALCIUM D3 ^STADA^ [Concomitant]

REACTIONS (3)
  - HYPOCALCAEMIA [None]
  - HYPONATRAEMIA [None]
  - MUSCLE SPASMS [None]
